FAERS Safety Report 5277742-1 (Version None)
Quarter: 2007Q1

REPORT INFORMATION
  Report Type: 
  Country: None (occurrence: None)
  Receive Date: 20070327
  Receipt Date: 20070315
  Transmission Date: 20070707
  Serious: Yes (Hospitalization, Other)
  Sender: FDA-Public Use
  Company Number: JP-PFIZER INC-2007015096

PATIENT
  Age: 30 Year
  Sex: Female

DRUGS (2)
  1. SOLU-MEDROL [Suspect]
  2. PREDNISOLONE [Suspect]

REACTIONS (3)
  - CYTOMEGALOVIRUS COLITIS [None]
  - PULMONARY ALVEOLAR HAEMORRHAGE [None]
  - SYSTEMIC LUPUS ERYTHEMATOSUS [None]
